FAERS Safety Report 9203866 (Version 1)
Quarter: 2013Q2

REPORT INFORMATION
  Report Type: Spontaneous
  Country: US (occurrence: US)
  Receive Date: 20130402
  Receipt Date: 20130402
  Transmission Date: 20140414
  Serious: Yes (Hospitalization)
  Sender: FDA-Public Use
  Company Number: US-SANOFI-AVENTIS-2013SA032804

PATIENT
  Age: 77 Year
  Sex: Female

DRUGS (2)
  1. CLOPIDOGREL BISULFATE [Suspect]
     Indication: CARDIAC DISORDER
     Dates: start: 2006
  2. CLOPIDOGREL BISULFATE [Suspect]
     Indication: CARDIAC DISORDER
     Dates: end: 20130305

REACTIONS (2)
  - Colon cancer metastatic [Unknown]
  - Oedema mouth [Unknown]
